FAERS Safety Report 14896383 (Version 1)
Quarter: 2018Q2

REPORT INFORMATION
  Report Type: Spontaneous
  Country: US (occurrence: US)
  Receive Date: 20180515
  Receipt Date: 20180515
  Transmission Date: 20180711
  Serious: No
  Sender: FDA-Public Use
  Company Number: US-LEXICON PHARMACEUTICALS, INC-18-1606-00475

PATIENT
  Age: 47 Year
  Sex: Female

DRUGS (2)
  1. TELOTRISTAT ETHYL [Suspect]
     Active Substance: TELOTRISTAT ETHYL
     Indication: CARCINOID SYNDROME
     Route: 048
     Dates: start: 20170308
  2. SANDOSTATIN LAR DEPOT [Concomitant]
     Active Substance: OCTREOTIDE ACETATE
     Indication: CARCINOID SYNDROME
     Route: 030

REACTIONS (1)
  - Increased tendency to bruise [Not Recovered/Not Resolved]

NARRATIVE: CASE EVENT DATE: 20170330
